FAERS Safety Report 7528688-7 (Version None)
Quarter: 2011Q2

REPORT INFORMATION
  Report Type: 
  Country: None (occurrence: None)
  Receive Date: 20110607
  Receipt Date: 20110531
  Transmission Date: 20111010
  Serious: Yes (Other)
  Sender: FDA-Public Use
  Company Number: US-SANOFI-AVENTIS-2011SA026594

PATIENT
  Age: 67 Year
  Sex: Female

DRUGS (6)
  1. SOLOSTAR [Suspect]
     Indication: TYPE 2 DIABETES MELLITUS
     Dates: start: 20060101
  2. THYROID THERAPY [Concomitant]
  3. CHOLESTEROL [Concomitant]
  4. LANTUS [Suspect]
     Dosage: DOSE:48 UNIT(S)
     Route: 058
  5. ALL OTHER THERAPEUTIC PRODUCTS [Concomitant]
  6. LANTUS [Suspect]
     Indication: TYPE 2 DIABETES MELLITUS
     Dosage: DOSE:59 UNIT(S)
     Route: 058
     Dates: start: 20060101

REACTIONS (4)
  - INJECTION SITE HAEMORRHAGE [None]
  - BLOOD GLUCOSE INCREASED [None]
  - INJECTION SITE HAEMATOMA [None]
  - COLON CANCER [None]
